FAERS Safety Report 14409648 (Version 5)
Quarter: 2018Q2

REPORT INFORMATION
  Report Type: Report from Study
  Country: US (occurrence: US)
  Receive Date: 20180119
  Receipt Date: 20180504
  Transmission Date: 20180711
  Serious: Yes (Hospitalization, Other)
  Sender: FDA-Public Use
  Company Number: US-GILEAD-2017-0307921

PATIENT
  Age: 88 Year
  Sex: Female

DRUGS (3)
  1. OXYGEN. [Concomitant]
     Active Substance: OXYGEN
  2. AMBRISENTAN [Suspect]
     Active Substance: AMBRISENTAN
     Indication: PULMONARY ARTERIAL HYPERTENSION
     Dosage: 5 MG, QD
     Route: 065
     Dates: start: 20171003
  3. IRON [Concomitant]
     Active Substance: IRON

REACTIONS (6)
  - Oedema [Unknown]
  - Pleural effusion [Not Recovered/Not Resolved]
  - Gastroenteritis norovirus [Unknown]
  - Anaemia [Unknown]
  - Intentional dose omission [Recovered/Resolved]
  - Gastroenteritis viral [Recovered/Resolved]
